FAERS Safety Report 24141044 (Version 1)
Quarter: 2024Q3

REPORT INFORMATION
  Report Type: Spontaneous
  Country: US (occurrence: None)
  Receive Date: 20240725
  Receipt Date: 20240725
  Transmission Date: 20241017
  Serious: Yes (Hospitalization, Other)
  Sender: Public
  Company Number: None

PATIENT
  Age: 71 Year
  Sex: Male
  Weight: 89.1 kg

DRUGS (24)
  1. OZEMPIC [Suspect]
     Active Substance: SEMAGLUTIDE
     Indication: Diabetes mellitus
     Dosage: OTHER STRENGTH : .1;?
     Route: 030
     Dates: start: 20190909, end: 20201026
  2. RYBELSUS [Suspect]
     Active Substance: SEMAGLUTIDE
     Indication: Diabetes mellitus
     Route: 030
     Dates: start: 20190909, end: 20201026
  3. LANTUS SOLOSTAR [Concomitant]
     Active Substance: INSULIN GLARGINE
  4. HUMALOG PEN [Concomitant]
     Active Substance: INSULIN LISPRO
  5. VICTOZA [Concomitant]
     Active Substance: LIRAGLUTIDE
  6. DEXILANT [Concomitant]
     Active Substance: DEXLANSOPRAZOLE
  7. CLOPIDOGREL [Concomitant]
     Active Substance: CLOPIDOGREL BISULFATE
  8. NEBIVOLOL [Concomitant]
     Active Substance: NEBIVOLOL
  9. METFORMIN HYDROCHLORIDE [Concomitant]
     Active Substance: METFORMIN HYDROCHLORIDE
  10. RAMIPRIL [Concomitant]
     Active Substance: RAMIPRIL
  11. FEXOFENADINE HYDROCHLORIDE [Concomitant]
     Active Substance: FEXOFENADINE HYDROCHLORIDE
  12. GABAPENTIN [Concomitant]
     Active Substance: GABAPENTIN
  13. VITAMIN D3 [Concomitant]
     Active Substance: CHOLECALCIFEROL
  14. VITAMIN B12 [Concomitant]
     Active Substance: CYANOCOBALAMIN
  15. Bausch + Lomb Preservision AREDS II [Concomitant]
  16. Wixela Inhub Diskus [Concomitant]
  17. FENOFIBRATE [Concomitant]
     Active Substance: FENOFIBRATE
  18. ATORVASTATIN [Concomitant]
     Active Substance: ATORVASTATIN
  19. MONTELUKAST [Concomitant]
     Active Substance: MONTELUKAST SODIUM
  20. EZETIMIBE [Concomitant]
     Active Substance: EZETIMIBE
  21. ASPIRIN [Concomitant]
     Active Substance: ASPIRIN
  22. FAMOTIDINE [Concomitant]
     Active Substance: FAMOTIDINE
  23. FLONASE [Concomitant]
     Active Substance: FLUTICASONE PROPIONATE
  24. Azelastine 0.1% Proventil HFA [Concomitant]

REACTIONS (6)
  - Neuralgia [None]
  - Neck pain [None]
  - Back pain [None]
  - Chest pain [None]
  - Pain in extremity [None]
  - Chills [None]

NARRATIVE: CASE EVENT DATE: 20190919
